FAERS Safety Report 5060191-9 (Version None)
Quarter: 2006Q3

REPORT INFORMATION
  Report Type: 
  Country: None (occurrence: None)
  Receive Date: 20060724
  Receipt Date: 20060714
  Transmission Date: 20061208
  Serious: Yes (Hospitalization)
  Sender: FDA-Public Use
  Company Number: JP-ABBOTT-06P-087-0338284-00

PATIENT
  Age: 34 Year
  Sex: Male
  Weight: 65 kg

DRUGS (4)
  1. CLARITHROMYCIN [Suspect]
     Indication: NASOPHARYNGITIS
     Route: 048
     Dates: start: 20060526, end: 20060528
  2. PL [Concomitant]
     Indication: NASOPHARYNGITIS
     Route: 048
     Dates: start: 20060526, end: 20060527
  3. LOXOPROFEN SODIUM [Concomitant]
     Indication: NASOPHARYNGITIS
     Route: 048
     Dates: start: 20060526, end: 20060527
  4. TRANEXAMIC ACID [Concomitant]
     Indication: NASOPHARYNGITIS
     Route: 048
     Dates: start: 20060526, end: 20060527

REACTIONS (4)
  - BLOOD CREATINE PHOSPHOKINASE INCREASED [None]
  - MUSCULAR WEAKNESS [None]
  - MYALGIA [None]
  - PAIN [None]
